FAERS Safety Report 17448741 (Version 1)
Quarter: 2020Q1

REPORT INFORMATION
  Report Type: Spontaneous
  Country: US (occurrence: US)
  Receive Date: 20200224
  Receipt Date: 20200224
  Transmission Date: 20200409
  Serious: No
  Sender: FDA-Public Use
  Company Number: US-TEVA-2020-US-1188867

PATIENT
  Age: 81 Year
  Sex: Female

DRUGS (2)
  1. FAMOTIDINE. [Suspect]
     Active Substance: FAMOTIDINE
     Dosage: HALF A TABLET
     Route: 065
  2. LANZOPRAZOLE [Concomitant]
     Active Substance: LANSOPRAZOLE
     Dosage: 12.5 MG EVERY OTHER DAY
     Route: 065

REACTIONS (4)
  - Tremor [Unknown]
  - Dizziness [Unknown]
  - Wrong technique in product usage process [Unknown]
  - Heart rate increased [Unknown]
